FAERS Safety Report 8110320-5 (Version None)
Quarter: 2012Q1

REPORT INFORMATION
  Report Type: 
  Country: None (occurrence: None)
  Receive Date: 20120202
  Receipt Date: 20120131
  Transmission Date: 20120608
  Serious: Yes (Hospitalization)
  Sender: FDA-Public Use
  Company Number: SK-ROCHE-792099

PATIENT
  Sex: Female
  Weight: 65 kg

DRUGS (9)
  1. CARBOPLATIN [Suspect]
     Indication: OVARIAN CANCER
     Route: 042
  2. NORVASC [Concomitant]
  3. TORVACARD [Concomitant]
     Dates: start: 20110718, end: 20110725
  4. AVASTIN [Suspect]
     Indication: OVARIAN CANCER
     Route: 042
  5. TRANDOLAPRIL [Concomitant]
     Dates: start: 20110718, end: 20110725
  6. EGILOK [Concomitant]
  7. PACLITAXEL [Suspect]
     Indication: OVARIAN CANCER
     Route: 042
  8. TARKA [Concomitant]
     Dates: start: 19980101, end: 20110719
  9. LEXAURIN [Concomitant]

REACTIONS (2)
  - SINUS TACHYCARDIA [None]
  - HYPERTENSION [None]
